FAERS Safety Report 15407042 (Version 1)
Quarter: 2018Q3

REPORT INFORMATION
  Report Type: Spontaneous
  Country: US (occurrence: US)
  Receive Date: 20180912
  Receipt Date: 20180912
  Transmission Date: 20181010
  Serious: Yes (Hospitalization)
  Sender: FDA-Public Use
  Company Number: None

PATIENT
  Age: 68 Year
  Sex: Female

DRUGS (2)
  1. IBRANCE [Suspect]
     Active Substance: PALBOCICLIB
     Indication: BREAST CANCER
     Dosage: ?          OTHER DOSE:125 MG CAP;OTHER FREQUENCY:QD1?21 OF 28;?
     Route: 048
     Dates: start: 20170404
  2. FASLODEX [Concomitant]
     Active Substance: FULVESTRANT

REACTIONS (2)
  - Drug dose omission [None]
  - Urinary tract infection [None]

NARRATIVE: CASE EVENT DATE: 201809
